FAERS Safety Report 9353805 (Version 2)
Quarter: 2013Q4

REPORT INFORMATION
  Report Type: Spontaneous
  Country: US (occurrence: US)
  Receive Date: 20130618
  Receipt Date: 20131115
  Transmission Date: 20140711
  Serious: No
  Sender: FDA-Public Use
  Company Number: US-B.I. PHARMACEUTICALS,INC./RIDGEFIELD-2013-BI-16856BP

PATIENT
  Sex: Male
  Weight: 106.59 kg

DRUGS (5)
  1. PRADAXA [Suspect]
     Indication: ATRIAL FIBRILLATION
     Dates: start: 20111212, end: 201204
  2. PRADAXA [Suspect]
     Indication: TRANSIENT ISCHAEMIC ATTACK
  3. CLONAZEPAM [Concomitant]
     Dates: start: 2011
  4. LISINOPRIL [Concomitant]
     Indication: HYPERTENSION
     Dates: start: 2011
  5. SOTALOL [Concomitant]
     Indication: ATRIAL FIBRILLATION
     Dates: start: 2011

REACTIONS (5)
  - Gastrointestinal haemorrhage [Recovered/Resolved]
  - Headache [Unknown]
  - Gingival bleeding [Unknown]
  - Epistaxis [Unknown]
  - Presyncope [Unknown]
